FAERS Safety Report 10210603 (Version 1)
Quarter: 2014Q2

REPORT INFORMATION
  Report Type: Spontaneous
  Country: US (occurrence: None)
  Receive Date: 20140530
  Receipt Date: 20140530
  Transmission Date: 20141212
  Serious: Yes (Death, Hospitalization)
  Sender: FDA-Public Use
  Company Number: None

PATIENT
  Age: 71 Year
  Sex: Female
  Weight: 92 kg

DRUGS (3)
  1. VANCOMYCIN HCL [Suspect]
     Indication: SKIN ULCER
     Dosage: 10 DOSES
     Route: 042
  2. FRESNIUS 2008 K2 MACHINE [Concomitant]
  3. COMBISET [Concomitant]

REACTIONS (4)
  - Nausea [None]
  - Hypotension [None]
  - Unresponsive to stimuli [None]
  - Cardio-respiratory arrest [None]
